FAERS Safety Report 4883292-4 (Version None)
Quarter: 2006Q1

REPORT INFORMATION
  Report Type: 
  Country: None (occurrence: None)
  Receive Date: 20060113
  Receipt Date: 20051228
  Transmission Date: 20060701
  Serious: Yes (Hospitalization)
  Sender: FDA-Public Use
  Company Number: ACO_0204_2005

PATIENT
  Age: 45 Year
  Sex: Female
  Weight: 57 kg

DRUGS (3)
  1. TERNELIN [Suspect]
     Indication: MUSCLE SPASTICITY
     Dosage: 3 MG QDAY PO
     Route: 048
     Dates: start: 19920101
  2. CIPROFLOXACIN [Suspect]
     Indication: PYURIA
     Dosage: 400 MG QDAY PO
     Route: 048
     Dates: start: 20020101
  3. PREDNISOLONE [Concomitant]

REACTIONS (7)
  - BLOOD PRESSURE DECREASED [None]
  - BODY TEMPERATURE DECREASED [None]
  - DIFFICULTY IN WALKING [None]
  - DYSPHORIA [None]
  - HEART RATE DECREASED [None]
  - SOMNOLENCE [None]
  - URINARY RETENTION [None]
